FAERS Safety Report 14796684 (Version 2)
Quarter: 2018Q3

REPORT INFORMATION
  Report Type: Report from Study
  Country: US (occurrence: US)
  Receive Date: 20180423
  Receipt Date: 20180720
  Transmission Date: 20181010
  Serious: No
  Sender: FDA-Public Use
  Company Number: US-AMGEN-USASL2018049156

PATIENT
  Age: 64 Year
  Sex: Female

DRUGS (1)
  1. REPATHA [Suspect]
     Active Substance: EVOLOCUMAB
     Indication: HYPERCHOLESTEROLAEMIA
     Dosage: 140 MG, Q2WK
     Route: 065
     Dates: start: 201702

REACTIONS (7)
  - Musculoskeletal discomfort [Not Recovered/Not Resolved]
  - Cough [Unknown]
  - Nasal dryness [Unknown]
  - Alopecia [Unknown]
  - Back pain [Unknown]
  - Stress [Unknown]
  - Sneezing [Unknown]

NARRATIVE: CASE EVENT DATE: 201712
